FAERS Safety Report 10163920 (Version 2)
Quarter: 2014Q2

REPORT INFORMATION
  Report Type: Spontaneous
  Country: DE (occurrence: DE)
  Receive Date: 20140510
  Receipt Date: 20140510
  Transmission Date: 20141212
  Serious: Yes (Other)
  Sender: FDA-Public Use
  Company Number: DE-AMGEN-DEUSP2014021531

PATIENT
  Age: 89 Year
  Sex: Female
  Weight: 45 kg

DRUGS (10)
  1. PROLIA [Suspect]
     Indication: OSTEOPOROSIS POSTMENOPAUSAL
     Dosage: 60 MG, Q6MO
     Route: 058
     Dates: start: 20101107
  2. LORZAAR PROTECT [Concomitant]
     Indication: HYPERTENSION
     Dosage: 50 MG, UNK
     Dates: start: 2009, end: 20120117
  3. LORZAAR PROTECT [Concomitant]
     Indication: EXTRASYSTOLES
  4. METOPROLOL [Concomitant]
     Indication: HYPERTENSION
     Dosage: 50 MG, UNK
     Dates: start: 20120118, end: 20130313
  5. METOPROLOL [Concomitant]
     Indication: EXTRASYSTOLES
  6. VERAPAMIL [Concomitant]
     Indication: HYPERTENSION
     Dosage: 120 UNK, UNK
     Dates: start: 20130317
  7. VERAPAMIL [Concomitant]
     Indication: EXTRASYSTOLES
  8. DEKRISTOL [Concomitant]
     Indication: OSTEOPOROSIS
     Dosage: 20000 UNK, Q2WK
     Dates: start: 2010, end: 2014
  9. DEKRISTOL [Concomitant]
     Indication: VITAMIN D DEFICIENCY
  10. TIM-OPHTAL [Concomitant]
     Indication: GLAUCOMA
     Dosage: 0.5 %, BID
     Dates: start: 2011

REACTIONS (6)
  - Pneumonia [Recovered/Resolved]
  - Idiopathic pulmonary fibrosis [Unknown]
  - Left ventricular hypertrophy [Unknown]
  - Bifascicular block [Unknown]
  - Supraventricular extrasystoles [Unknown]
  - Electrocardiogram QT prolonged [Unknown]
